FAERS Safety Report 13788748 (Version 2)
Quarter: 2017Q3

REPORT INFORMATION
  Report Type: Spontaneous
  Country: US (occurrence: US)
  Receive Date: 20170725
  Receipt Date: 20170727
  Transmission Date: 20171127
  Serious: No
  Sender: FDA-Public Use
  Company Number: US-009507513-1707USA006143

PATIENT
  Age: 26 Year
  Sex: Female
  Weight: 63.95 kg

DRUGS (1)
  1. NUVARING [Suspect]
     Active Substance: ETHINYL ESTRADIOL\ETONOGESTREL
     Dosage: 1 RING, 30 DAYS INSIDE THEN REMOVE AND INSERT A NEW RING
     Route: 067

REACTIONS (3)
  - Vaginal haemorrhage [Unknown]
  - Inappropriate schedule of drug administration [Unknown]
  - Incorrect drug administration duration [Unknown]
